FAERS Safety Report 21611628 (Version 5)
Quarter: 2022Q4

REPORT INFORMATION
  Report Type: Report from Study
  Country: GB (occurrence: GB)
  Receive Date: 20221117
  Receipt Date: 20221220
  Transmission Date: 20230112
  Serious: Yes (Hospitalization)
  Sender: FDA-Public Use
  Company Number: GB-JNJFOC-20200209260

PATIENT
  Age: 75 Year
  Sex: Female

DRUGS (100)
  1. VENETOCLAX [Suspect]
     Active Substance: VENETOCLAX
     Indication: Plasma cell myeloma
     Dosage: 600 MG, QD
     Route: 048
     Dates: start: 20170530, end: 20190523
  2. VENETOCLAX [Suspect]
     Active Substance: VENETOCLAX
     Indication: Plasma cell myeloma
     Dosage: 400 MG, QD
     Route: 048
     Dates: start: 20170524, end: 20191031
  3. VENETOCLAX [Suspect]
     Active Substance: VENETOCLAX
     Indication: Plasma cell myeloma
     Dosage: 400 MG, QD
     Route: 048
     Dates: start: 20191213
  4. VENETOCLAX [Suspect]
     Active Substance: VENETOCLAX
     Indication: Plasma cell myeloma
     Dosage: 800 MG, QD
     Route: 048
     Dates: start: 20170404, end: 20170522
  5. IMODIUM [Concomitant]
     Active Substance: LOPERAMIDE HYDROCHLORIDE
     Indication: Antidiarrhoeal supportive care
     Dosage: 2 MG
     Route: 048
     Dates: start: 201705
  6. SANDO-K [Concomitant]
     Indication: Prophylaxis
     Dosage: (2 TABLET,AS REQUIRED)
     Route: 048
     Dates: start: 20190523
  7. SANDO-K [Concomitant]
     Indication: Prophylaxis
     Dosage: TIME INTERVAL: AS NECESSARY: (2 TABLET,AS REQUIRED)
     Route: 048
     Dates: start: 20190523
  8. SANDO-K [Concomitant]
     Indication: Prophylaxis
     Dosage: 2 TABLET (2 TABLET,1 IN 1 D)
     Route: 048
     Dates: start: 20170412, end: 20170412
  9. SANDO-K [Concomitant]
     Indication: Prophylaxis
     Dosage: 6 TABLET (2 TABLET,3 IN 1 D)
     Route: 048
     Dates: start: 20180321, end: 20180325
  10. SANDO-K [Concomitant]
     Indication: Prophylaxis
     Dosage: 6 TABLET (2 TABLET,3 IN 1 D)
     Route: 048
     Dates: start: 20170413, end: 20170414
  11. SANDO-K [Concomitant]
     Indication: Prophylaxis
     Dosage: 2 TABLET,1 IN 1 D
     Route: 048
     Dates: start: 20181224, end: 20181224
  12. SANDO-K [Concomitant]
     Indication: Prophylaxis
     Dosage: 1 TABLET (1 TABLET,1 IN 1 D)
     Route: 048
     Dates: start: 20190117, end: 20190506
  13. SANDO-K [Concomitant]
     Indication: Prophylaxis
     Dosage: 2 TABLET,1 IN 3 D
     Route: 048
     Dates: start: 20171231, end: 20180104
  14. SANDO-K [Concomitant]
     Indication: Prophylaxis
     Dosage: 6 TABLET (2 TABLET,3 IN 1 D)
     Route: 048
     Dates: start: 20170413, end: 20170414
  15. SANDO-K [Concomitant]
     Indication: Prophylaxis
     Dosage: 6 TABLET (2 TABLET,3 IN 1 D)
     Route: 048
     Dates: start: 20180321, end: 20180325
  16. SANDO-K [Concomitant]
     Indication: Prophylaxis
     Dosage: 4 TABLET (2 TABLET,2 IN 1 D)
     Route: 048
     Dates: start: 20170415, end: 20170415
  17. SANDO-K [Concomitant]
     Indication: Prophylaxis
     Dosage: 6 TABLET (2 TABLET,3 IN 1 D)
     Route: 048
     Dates: start: 20181225, end: 20181227
  18. SANDO-K [Concomitant]
     Indication: Prophylaxis
     Dosage: 1 TABLET,1 IN 1 D
     Route: 048
     Dates: start: 20180320, end: 20180320
  19. SANDO-K [Concomitant]
     Indication: Prophylaxis
     Dosage: 6 TABLET (2 TABLET,3 IN 1 D)
     Route: 048
     Dates: start: 20181225, end: 20181227
  20. SANDO-K [Concomitant]
     Indication: Prophylaxis
     Dosage: 4 TABLET (2 TABLET,2 IN 1 D)
     Route: 048
     Dates: start: 20170415, end: 20170415
  21. BENZYDAMINE [Concomitant]
     Active Substance: BENZYDAMINE
     Indication: Mouth ulceration
     Dosage: UNK
     Route: 065
  22. BENZYDAMINE [Concomitant]
     Active Substance: BENZYDAMINE
     Indication: Mouth ulceration
     Dosage: TIME INTERVAL: AS NECESSARY: 5-10 ML (AS REQUIRED)
     Route: 048
     Dates: start: 20170619
  23. BENZYDAMINE [Concomitant]
     Active Substance: BENZYDAMINE
     Indication: Mouth ulceration
     Dosage: 5-10 ML (AS REQUIRED)
     Route: 048
     Dates: start: 20170619
  24. CALCIUM CARBONATE\CHOLECALCIFEROL [Concomitant]
     Active Substance: CALCIUM CARBONATE\CHOLECALCIFEROL
     Indication: Mineral supplementation
     Route: 048
  25. CALCIUM CARBONATE\CHOLECALCIFEROL [Concomitant]
     Active Substance: CALCIUM CARBONATE\CHOLECALCIFEROL
     Indication: Mineral supplementation
     Dosage: UNK
     Route: 048
  26. COTRIMOXAZOLE [Concomitant]
     Active Substance: SULFAMETHOXAZOLE\TRIMETHOPRIM
     Indication: Infection prophylaxis
     Dosage: 3840 MG, QD
     Route: 048
     Dates: start: 20170417, end: 20170417
  27. COTRIMOXAZOLE [Concomitant]
     Active Substance: SULFAMETHOXAZOLE\TRIMETHOPRIM
     Indication: Infection prophylaxis
     Dosage: 3840 MG, QD
     Route: 048
     Dates: start: 20170419, end: 20170424
  28. COTRIMOXAZOLE [Concomitant]
     Active Substance: SULFAMETHOXAZOLE\TRIMETHOPRIM
     Indication: Infection prophylaxis
     Dosage: 480 MG, QD
     Route: 048
     Dates: start: 20190322, end: 20191004
  29. COTRIMOXAZOLE [Concomitant]
     Active Substance: SULFAMETHOXAZOLE\TRIMETHOPRIM
     Indication: Infection prophylaxis
     Dosage: 480 MG, QD
     Route: 048
     Dates: start: 20191011
  30. COTRIMOXAZOLE [Concomitant]
     Active Substance: SULFAMETHOXAZOLE\TRIMETHOPRIM
     Indication: Infection prophylaxis
     Route: 048
     Dates: start: 20170417, end: 20170417
  31. COTRIMOXAZOLE [Concomitant]
     Active Substance: SULFAMETHOXAZOLE\TRIMETHOPRIM
     Indication: Infection prophylaxis
     Dosage: 960 MG
     Route: 048
     Dates: start: 20170424, end: 20170427
  32. COTRIMOXAZOLE [Concomitant]
     Active Substance: SULFAMETHOXAZOLE\TRIMETHOPRIM
     Indication: Infection prophylaxis
     Route: 048
     Dates: start: 20170419, end: 20170424
  33. COTRIMOXAZOLE [Concomitant]
     Active Substance: SULFAMETHOXAZOLE\TRIMETHOPRIM
     Indication: Infection prophylaxis
     Dosage: 960 MG
     Route: 048
     Dates: start: 20170418, end: 20170418
  34. CHLORHEXIDINE GLUCONATE [Concomitant]
     Active Substance: CHLORHEXIDINE GLUCONATE
     Indication: Mouth ulceration
     Dosage: 5-10 ML (AS REQUIRED)
     Route: 048
     Dates: start: 20170604
  35. CHLORHEXIDINE GLUCONATE [Concomitant]
     Active Substance: CHLORHEXIDINE GLUCONATE
     Indication: Mouth ulceration
     Dosage: TIME INTERVAL: AS NECESSARY: 5-10 ML (AS REQUIRED)
     Route: 048
     Dates: start: 20170604
  36. CHLORHEXIDINE GLUCONATE [Concomitant]
     Active Substance: CHLORHEXIDINE GLUCONATE
     Indication: Mouth ulceration
     Dosage: UNK
     Route: 065
  37. CETIRIZINE [Concomitant]
     Active Substance: CETIRIZINE HYDROCHLORIDE
     Indication: Seasonal allergy
     Dosage: TIME INTERVAL: AS NECESSARY: 10 MG
     Route: 048
     Dates: start: 20170422
  38. MAGNESIUM [Concomitant]
     Active Substance: MAGNESIUM
     Indication: Hypomagnesaemia
     Dosage: 1 DF, QD
     Route: 048
     Dates: start: 201906
  39. MAGNESIUM [Concomitant]
     Active Substance: MAGNESIUM
     Indication: Hypomagnesaemia
     Dosage: 1 DF, QD
     Route: 048
     Dates: start: 20171221, end: 20190506
  40. MAGNESIUM [Concomitant]
     Active Substance: MAGNESIUM
     Indication: Hypomagnesaemia
     Dosage: UNK
     Route: 065
  41. MAGNESIUM [Concomitant]
     Active Substance: MAGNESIUM
     Indication: Hypomagnesaemia
     Dosage: UNK
     Route: 048
  42. VENTOLIN [Concomitant]
     Active Substance: ALBUTEROL SULFATE
     Indication: Asthma
     Dosage: 2 DOSAGE FORM, QD (4 PUFF (2 PUFF,2 IN 1 D))
     Route: 048
  43. VENTOLIN [Concomitant]
     Active Substance: ALBUTEROL SULFATE
     Indication: Asthma
     Dosage: 4 PUFF (2 PUFF,2 IN 1 D)
     Route: 048
  44. VENTOLIN [Concomitant]
     Active Substance: ALBUTEROL SULFATE
     Indication: Asthma
     Dosage: 4 PUFF (2 PUFF,2 IN 1 D)
     Route: 048
  45. VENTOLIN [Concomitant]
     Active Substance: ALBUTEROL SULFATE
     Indication: Asthma
     Dosage: 200 MCG, 1 DOSE 12 HOURS
     Route: 048
     Dates: start: 20181220
  46. VENTOLIN [Concomitant]
     Active Substance: ALBUTEROL SULFATE
     Indication: Asthma
     Route: 048
     Dates: start: 20181220
  47. MINERAL OIL\PARAFFIN [Concomitant]
     Active Substance: MINERAL OIL\PARAFFIN
     Indication: Dry skin
     Dosage: TIME INTERVAL: AS NECESSARY: 1 DOSAGE FORM
     Route: 061
     Dates: start: 20181225
  48. METOCLOPRAMIDE [Concomitant]
     Active Substance: METOCLOPRAMIDE
     Indication: Vomiting
     Dosage: TIME INTERVAL: AS NECESSARY: 10 MG, PRN
     Route: 048
     Dates: start: 20170410
  49. METOCLOPRAMIDE [Concomitant]
     Active Substance: METOCLOPRAMIDE
     Indication: Vomiting
     Dosage: UNK
     Route: 065
  50. METOCLOPRAMIDE [Concomitant]
     Active Substance: METOCLOPRAMIDE
     Indication: Vomiting
     Dosage: UNK
     Route: 065
  51. BECLOMETHASONE DIPROPIONATE [Concomitant]
     Active Substance: BECLOMETHASONE DIPROPIONATE
     Indication: Asthma
     Route: 048
     Dates: start: 1997
  52. BECLOMETHASONE DIPROPIONATE [Concomitant]
     Active Substance: BECLOMETHASONE DIPROPIONATE
     Indication: Asthma
     Dosage: 1600 UG, QD
     Route: 048
     Dates: start: 1997
  53. POTASSIUM CHLORIDE [Concomitant]
     Active Substance: POTASSIUM CHLORIDE
     Indication: Prophylaxis
     Dosage: 2 DF, PRN
     Route: 048
     Dates: start: 20190523
  54. POTASSIUM CHLORIDE [Concomitant]
     Active Substance: POTASSIUM CHLORIDE
     Indication: Prophylaxis
     Dosage: 6 TABLET (2 TABLET,3 IN 1 D)
     Route: 048
     Dates: start: 20180321, end: 20180325
  55. POTASSIUM CHLORIDE [Concomitant]
     Active Substance: POTASSIUM CHLORIDE
     Indication: Prophylaxis
     Dosage: 2 DF, QD (4 TABLET (2 TABLET,2 IN 1 D))
     Route: 048
     Dates: start: 20170415, end: 20170415
  56. POTASSIUM CHLORIDE [Concomitant]
     Active Substance: POTASSIUM CHLORIDE
     Indication: Prophylaxis
     Dosage: 2 TABLET,1 IN 3 D
     Route: 048
     Dates: start: 20171231, end: 20180104
  57. POTASSIUM CHLORIDE [Concomitant]
     Active Substance: POTASSIUM CHLORIDE
     Indication: Prophylaxis
     Dosage: 1 DF, QD (2 TABLET (2 TABLET,1 IN 1 D))
     Route: 065
     Dates: start: 20170412, end: 20170412
  58. POTASSIUM CHLORIDE [Concomitant]
     Active Substance: POTASSIUM CHLORIDE
     Indication: Prophylaxis
     Dosage: 3 DF, QD (6 TABLET (2 TABLET,3 IN 1 D))
     Route: 048
     Dates: start: 20181225, end: 20181227
  59. POTASSIUM CHLORIDE [Concomitant]
     Active Substance: POTASSIUM CHLORIDE
     Indication: Prophylaxis
     Dosage: 1 DF, QD
     Route: 048
     Dates: start: 20180320, end: 20180320
  60. POTASSIUM CHLORIDE [Concomitant]
     Active Substance: POTASSIUM CHLORIDE
     Indication: Prophylaxis
     Dosage: 1 DF, QD (2 TABLET,1 IN 1 D)
     Route: 048
     Dates: start: 20181224, end: 20181224
  61. POTASSIUM CHLORIDE [Concomitant]
     Active Substance: POTASSIUM CHLORIDE
     Indication: Prophylaxis
     Dosage: 1 DF, QD (1 TABLET,1 IN 1 D)
     Route: 048
     Dates: start: 20190117, end: 20190506
  62. ALBUTEROL [Concomitant]
     Active Substance: ALBUTEROL
     Indication: Pneumonia
     Dosage: TIME INTERVAL: AS NECESSARY: 2.5 MG (INHALATION) ASNECESSARY
     Route: 048
     Dates: start: 20181221
  63. ALBUTEROL [Concomitant]
     Active Substance: ALBUTEROL
     Indication: Pneumonia
     Dosage: 4 PUFF (2 PUFF,2 IN 1 D)
     Route: 048
  64. ALBUTEROL [Concomitant]
     Active Substance: ALBUTEROL
     Indication: Pneumonia
     Dosage: 4 PUFF (2 PUFF,2 IN 1 D)
     Route: 048
  65. ALBUTEROL [Concomitant]
     Active Substance: ALBUTEROL
     Indication: Pneumonia
     Dosage: UNK
     Route: 065
  66. ALBUTEROL [Concomitant]
     Active Substance: ALBUTEROL
     Indication: Pneumonia
     Dosage: UNK
     Route: 065
  67. ALBUTEROL [Concomitant]
     Active Substance: ALBUTEROL
     Indication: Pneumonia
     Dosage: 200 ?G, INHALATION
     Route: 048
     Dates: end: 20181220
  68. ZOMETA [Concomitant]
     Active Substance: ZOLEDRONIC ACID
     Indication: Vertebral lesion
     Dosage: 4 MG, Q4W
     Route: 042
     Dates: start: 201312
  69. LEVOFLOXACIN [Concomitant]
     Active Substance: LEVOFLOXACIN
     Indication: Antibiotic prophylaxis
     Dosage: 500 MG, QD
     Route: 048
     Dates: start: 20191011
  70. LEVOFLOXACIN [Concomitant]
     Active Substance: LEVOFLOXACIN
     Indication: Antibiotic prophylaxis
     Dosage: 500 MG, QD
     Route: 048
     Dates: start: 20190322, end: 20191004
  71. ACETAMINOPHEN [Concomitant]
     Active Substance: ACETAMINOPHEN
     Indication: Pain in extremity
     Dosage: TIME INTERVAL: AS NECESSARY: 1 G, PRN
     Route: 048
     Dates: start: 20170410, end: 20170418
  72. ACETAMINOPHEN [Concomitant]
     Active Substance: ACETAMINOPHEN
     Indication: Pain in extremity
     Dosage: TIME INTERVAL: AS NECESSARY: 1 G, PRN
     Route: 048
     Dates: start: 20181221, end: 20181228
  73. ACETAMINOPHEN [Concomitant]
     Active Substance: ACETAMINOPHEN
     Indication: Pain in extremity
     Dosage: TIME INTERVAL: AS NECESSARY: 1 G, PRN
     Route: 048
     Dates: start: 20170505
  74. ACETAMINOPHEN [Concomitant]
     Active Substance: ACETAMINOPHEN
     Indication: Pain in extremity
     Dosage: UNK
     Route: 065
  75. ACETAMINOPHEN [Concomitant]
     Active Substance: ACETAMINOPHEN
     Indication: Pain in extremity
     Dosage: UNK
     Route: 065
  76. VELCADE [Suspect]
     Active Substance: BORTEZOMIB
     Indication: Plasma cell myeloma
     Dosage: 1.45 MG (CYCLE 9 AND BEYOND: ON DAYS 1, 8, 15 AND 22 OF 35 DAY CYCLE)
     Route: 058
     Dates: start: 20171003, end: 20190614
  77. VELCADE [Suspect]
     Active Substance: BORTEZOMIB
     Indication: Plasma cell myeloma
     Dosage: 1.45 MG (CYCLE 1-8: ON DAYS 1, 4, 8 AND 11 OF 21 DAY CYCLE)
     Route: 058
     Dates: start: 20170530, end: 20170926
  78. VELCADE [Suspect]
     Active Substance: BORTEZOMIB
     Indication: Plasma cell myeloma
     Dosage: 2 MG (CYCLE 1-8: ON DAYS 1, 4, 8 AND 11 OF 21 DAY CYCLE)
     Route: 058
     Dates: start: 20170404, end: 20170512
  79. VELCADE [Suspect]
     Active Substance: BORTEZOMIB
     Indication: Plasma cell myeloma
     Dosage: 1.05 MG (CYCLE 9 AND BEYOND: ON DAYS 1, 8, 15 AND 22 OF 35 DAY CYCLE)
     Route: 058
     Dates: start: 20191213
  80. VELCADE [Suspect]
     Active Substance: BORTEZOMIB
     Indication: Plasma cell myeloma
     Dosage: 1.05 MG (CYCLE 9 AND BEYOND: ON DAYS 1, 8, 15 AND 22 OF 35 DAY CYCLE)
     Route: 058
     Dates: start: 20190705, end: 20191018
  81. GAVISCON [Concomitant]
     Active Substance: ALUMINUM HYDROXIDE\MAGNESIUM CARBONATE
     Indication: Product used for unknown indication
     Dosage: TIME INTERVAL: AS NECESSARY: 5 ML
     Route: 048
     Dates: start: 20170626
  82. POLYETHYLENE GLYCOL 3350\POTASSIUM CHLORIDE\SODIUM BICARBONATE\SODIUM [Concomitant]
     Active Substance: POLYETHYLENE GLYCOL 3350\POTASSIUM CHLORIDE\SODIUM BICARBONATE\SODIUM CHLORIDE
     Indication: Constipation
     Dosage: TIME INTERVAL: AS NECESSARY: 1 DF, PRN
     Route: 048
     Dates: start: 20190626
  83. BONJELA [Concomitant]
     Active Substance: CETALKONIUM CHLORIDE\CHOLINE SALICYLATE\MENTHOL
     Indication: Mouth ulceration
     Dosage: TIME INTERVAL: AS NECESSARY: 1 DF
     Route: 048
     Dates: start: 20170619
  84. BONJELA [Concomitant]
     Active Substance: CETALKONIUM CHLORIDE\CHOLINE SALICYLATE\MENTHOL
     Indication: Mouth ulceration
     Dosage: UNK
     Route: 065
  85. DEXAMETHASONE [Suspect]
     Active Substance: DEXAMETHASONE
     Indication: Plasma cell myeloma
     Dosage: 20 MG (CYCLE 9 AND BEYOND: ON DAYS 1, 2, 8, 9, 15, 16, 22 AND 23 OF 35 DAY CYCLE)
     Route: 048
     Dates: start: 20171003, end: 20190511
  86. DEXAMETHASONE [Suspect]
     Active Substance: DEXAMETHASONE
     Indication: Plasma cell myeloma
     Dosage: CYCLE 1- 8: ON DAYS 1, 2, 4, 5, 8, 9, 11 AND 12 OF 21 DAY CYCLE
     Route: 048
     Dates: start: 20170404, end: 20170927
  87. DEXAMETHASONE [Suspect]
     Active Substance: DEXAMETHASONE
     Indication: Plasma cell myeloma
     Dosage: CYCLE 9 AND BEYOND: ON DAYS 1, 2, 8, 9, 15, 16, 22 AND 23 OF 35 DAY CYCLE
     Route: 048
     Dates: start: 20190524, end: 20191019
  88. DEXAMETHASONE [Suspect]
     Active Substance: DEXAMETHASONE
     Indication: Plasma cell myeloma
     Dosage: CYCLE 9 AND BEYOND: ON DAYS 1, 2, 8, 9, 15, 16, 22 AND 23 OF 35 DAY CYCLE
     Route: 048
     Dates: start: 20190511
  89. OMEPRAZOLE [Concomitant]
     Active Substance: OMEPRAZOLE
     Indication: Oesophageal ulcer
     Dosage: 20 MG, QD
     Route: 048
     Dates: start: 20181228
  90. OMEPRAZOLE [Concomitant]
     Active Substance: OMEPRAZOLE
     Indication: Oesophageal ulcer
     Dosage: 20 MG,2 IN 1 D
     Route: 048
     Dates: start: 201710, end: 20181224
  91. OMEPRAZOLE [Concomitant]
     Active Substance: OMEPRAZOLE
     Indication: Oesophageal ulcer
     Dosage: 80 MG, QD
     Route: 048
     Dates: start: 201710, end: 20181224
  92. OMEPRAZOLE [Concomitant]
     Active Substance: OMEPRAZOLE
     Indication: Oesophageal ulcer
     Dosage: 20 MG, QD
     Route: 048
     Dates: start: 201609, end: 201710
  93. HUMAN IMMUNOGLOBULIN G [Concomitant]
     Active Substance: HUMAN IMMUNOGLOBULIN G
     Indication: Infection prophylaxis
     Route: 042
     Dates: start: 20190107
  94. HUMAN IMMUNOGLOBULIN G [Concomitant]
     Active Substance: HUMAN IMMUNOGLOBULIN G
     Indication: Infection prophylaxis
     Route: 042
     Dates: start: 20180514, end: 201811
  95. HUMAN IMMUNOGLOBULIN G [Concomitant]
     Active Substance: HUMAN IMMUNOGLOBULIN G
     Indication: Infection prophylaxis
     Dosage: 30 G, QW
     Route: 042
     Dates: start: 20180514, end: 201811
  96. BECLOMETHASONE DIPROPIONATE [Concomitant]
     Active Substance: BECLOMETHASONE DIPROPIONATE
     Indication: Asthma
     Dosage: 1600 UG, QD
     Route: 048
     Dates: start: 1997
  97. BECLOMETHASONE DIPROPIONATE [Concomitant]
     Active Substance: BECLOMETHASONE DIPROPIONATE
     Indication: Asthma
     Dosage: 800 ?G, QD
     Route: 048
     Dates: start: 1997
  98. CARBOMER [Concomitant]
     Active Substance: CARBOMER
     Indication: Dry eye
     Dosage: PER EYE (1 DROP,AS REQUIRED)
     Route: 061
     Dates: start: 20181225
  99. CARBOMER [Concomitant]
     Active Substance: CARBOMER
     Indication: Dry eye
     Dosage: TIME INTERVAL: AS NECESSARY: PER EYE (1 DROP,AS REQUIRED)
     Route: 061
     Dates: start: 20181225
  100. FLUDROCORTISONE [Concomitant]
     Active Substance: FLUDROCORTISONE
     Indication: Orthostatic hypotension
     Dosage: 50 UG, QD
     Route: 048
     Dates: start: 20190418

REACTIONS (1)
  - Rhinovirus infection [Recovered/Resolved]

NARRATIVE: CASE EVENT DATE: 20191031
